FAERS Safety Report 17701495 (Version 2)
Quarter: 2020Q2

REPORT INFORMATION
  Report Type: Report from Study
  Country: BR (occurrence: BR)
  Receive Date: 20200423
  Receipt Date: 20200504
  Transmission Date: 20200714
  Serious: Yes (Other)
  Sender: FDA-Public Use
  Company Number: NVSC2020BR108744

PATIENT
  Sex: Female
  Weight: 70 kg

DRUGS (4)
  1. EXFORGE HCT [Suspect]
     Active Substance: AMLODIPINE BESYLATE\HYDROCHLOROTHIAZIDE\VALSARTAN
     Dosage: 1 DF (320/25/10 STARTED 3 MONTHS AGO)
     Route: 065
     Dates: start: 2020
  2. EXFORGE HCT [Suspect]
     Active Substance: AMLODIPINE BESYLATE\HYDROCHLOROTHIAZIDE\VALSARTAN
     Dosage: 1 DF (320/25/10 STARTED 2 YEARS AGO AND STOPPED 6 MONTHS AGO)
     Route: 065
     Dates: end: 2019
  3. EXFORGE HCT [Suspect]
     Active Substance: AMLODIPINE BESYLATE\HYDROCHLOROTHIAZIDE\VALSARTAN
     Indication: PRODUCT USED FOR UNKNOWN INDICATION
     Dosage: 1 DF (160/12.5/5 START 5 YEARS AGO AND STOPPED 2 YEARS AGO)
     Route: 065
  4. ATENOLOL. [Concomitant]
     Active Substance: ATENOLOL
     Indication: HYPERTENSION
     Dosage: 01 TABLET OF 25 MG, QD
     Route: 048

REACTIONS (7)
  - Deafness [Unknown]
  - Thyroid disorder [Unknown]
  - Neoplasm malignant [Unknown]
  - Hypoacusis [Not Recovered/Not Resolved]
  - Breast cancer [Recovering/Resolving]
  - Cervix carcinoma [Recovering/Resolving]
  - Paraesthesia [Recovering/Resolving]
